FAERS Safety Report 24933166 (Version 1)
Quarter: 2025Q1

REPORT INFORMATION
  Report Type: Spontaneous
  Country: AU (occurrence: AU)
  Receive Date: 20250206
  Receipt Date: 20250206
  Transmission Date: 20250408
  Serious: Yes (Death, Other)
  Sender: SANOFI AVENTIS
  Company Number: AU-SA-2025SA035378

PATIENT
  Sex: Male

DRUGS (10)
  1. ZOLPIDEM TARTRATE [Suspect]
     Active Substance: ZOLPIDEM TARTRATE
  2. SILDENAFIL CITRATE [Suspect]
     Active Substance: SILDENAFIL CITRATE
  3. ACETAMINOPHEN [Suspect]
     Active Substance: ACETAMINOPHEN
  4. MORPHINE [Suspect]
     Active Substance: MORPHINE
  5. DOXYLAMINE SUCCINATE [Suspect]
     Active Substance: DOXYLAMINE SUCCINATE
  6. CODEINE [Suspect]
     Active Substance: CODEINE
  7. CITALOPRAM HYDROBROMIDE [Suspect]
     Active Substance: CITALOPRAM HYDROBROMIDE
  8. AMLODIPINE [Suspect]
     Active Substance: AMLODIPINE BESYLATE
  9. PHOLCODINE [Suspect]
     Active Substance: PHOLCODINE
  10. ALCOHOL [Suspect]
     Active Substance: ALCOHOL

REACTIONS (4)
  - Pneumonia [Fatal]
  - Condition aggravated [Fatal]
  - Toxicity to various agents [Fatal]
  - Sedation complication [Unknown]

NARRATIVE: CASE EVENT DATE: 20230101
